FAERS Safety Report 5209068-6 (Version None)
Quarter: 2007Q1

REPORT INFORMATION
  Report Type: 
  Country: None (occurrence: None)
  Receive Date: 20070111
  Receipt Date: 20061227
  Transmission Date: 20070707
  Serious: Yes (Hospitalization)
  Sender: FDA-Public Use
  Company Number: DSA_29176_2006

PATIENT
  Age: 67 Year
  Sex: Male

DRUGS (8)
  1. TAVOR /00273201/ [Suspect]
     Dosage: 4 MG Q DAY PO
     Route: 048
  2. CAPTOPRIL [Suspect]
     Indication: HYPERTENSIVE CRISIS
     Dosage: 3 TAB Q DAY
     Dates: start: 20000111, end: 20000121
  3. ISOKET [Suspect]
     Indication: HYPERTENSIVE CRISIS
     Dosage: 40 MG Q DAY
     Dates: start: 20000111, end: 20000114
  4. DOMINAL [Suspect]
     Dosage: 80 MG Q DAY PO
     Route: 048
     Dates: start: 19991229
  5. ZOPICLONE [Suspect]
     Dosage: 1 TAB Q DAY PO
     Route: 048
     Dates: start: 19991201
  6. ANAFRANIL [Suspect]
     Dosage: VAR Q DAY IV
     Route: 042
     Dates: start: 20000112, end: 20000118
  7. ANAFRANIL [Suspect]
     Dosage: 25MG ONCE PO
     Route: 048
     Dates: start: 20000119, end: 20000119
  8. ANAFRANIL [Suspect]
     Dosage: 50 MG ONCE PO
     Route: 048
     Dates: start: 20000120, end: 20000120

REACTIONS (7)
  - DIZZINESS [None]
  - DRUG INTERACTION [None]
  - DRUG LEVEL INCREASED [None]
  - FALL [None]
  - HYPERHIDROSIS [None]
  - HYPOTENSION [None]
  - NAUSEA [None]
